FAERS Safety Report 6063935-2 (Version None)
Quarter: 2009Q1

REPORT INFORMATION
  Report Type: 
  Country: None (occurrence: None)
  Receive Date: 20090204
  Receipt Date: 20090123
  Transmission Date: 20090719
  Serious: Yes (Other)
  Sender: FDA-Public Use
  Company Number: PHHY2009ZA01788

PATIENT
  Sex: Female

DRUGS (11)
  1. ZOMETA [Suspect]
     Indication: METASTASES TO BONE
     Dosage: 4 MG, QMO
     Dates: start: 20030530, end: 20080219
  2. ARIMIDEX [Concomitant]
     Indication: ANTIOESTROGEN THERAPY
     Dosage: 1 MG/DAY
     Route: 048
     Dates: start: 20030925, end: 20050504
  3. NEURONTIN [Concomitant]
  4. AROMASIN [Concomitant]
     Indication: ANTIOESTROGEN THERAPY
     Dosage: 25 MG/DAY
     Route: 048
     Dates: start: 20050520, end: 20060614
  5. PULMISON [Concomitant]
     Indication: CHEMOTHERAPY
     Dosage: 20 MG, BID
     Route: 048
     Dates: start: 20060320, end: 20060817
  6. RADIOTHERAPY [Concomitant]
     Indication: METASTASES TO BONE
     Dosage: 60 GY ON RIGHT BREAST
     Dates: start: 19980223, end: 19980407
  7. RADIOTHERAPY [Concomitant]
     Indication: BREAST CANCER
     Dosage: 37.5 GY ON T6 + T8
     Dates: start: 20030911, end: 20031002
  8. RADIOTHERAPY [Concomitant]
     Dosage: 30 GY ON S1 JOINT
     Dates: start: 20081009, end: 20081022
  9. MITOXANTRONE [Concomitant]
     Indication: BREAST CANCER
     Dosage: 14 MG 4 WEEKLY
     Dates: start: 20080320, end: 20080814
  10. METHOTREXATE [Concomitant]
     Indication: BREAST CANCER
     Dosage: 50 MG 4 WEEKLY
     Dates: start: 20080320, end: 20080814
  11. MITOMYCIN [Concomitant]
     Indication: BREAST CANCER
     Dosage: 10 MG 4 WEEKLY
     Dates: start: 20080320, end: 20080814

REACTIONS (6)
  - ABSCESS DRAINAGE [None]
  - ABSCESS JAW [None]
  - CELLULITIS [None]
  - DENTAL IMPLANTATION [None]
  - FACIAL PAIN [None]
  - IMPAIRED HEALING [None]
